FAERS Safety Report 19362463 (Version 2)
Quarter: 2021Q2

REPORT INFORMATION
  Report Type: Spontaneous
  Country: FR (occurrence: FR)
  Receive Date: 20210603
  Receipt Date: 20210605
  Transmission Date: 20210717
  Serious: Yes (Hospitalization)
  Sender: FDA-Public Use
  Company Number: FR-TEVA-2021-FR-1917257

PATIENT
  Age: 60 Year
  Sex: Female

DRUGS (7)
  1. DULOXETINE BASE [Concomitant]
     Active Substance: DULOXETINE
     Dosage: 120MG
     Route: 048
     Dates: start: 202011
  2. PROPRANOLOL [Suspect]
     Active Substance: PROPRANOLOL HYDROCHLORIDE
     Indication: PRODUCT USED FOR UNKNOWN INDICATION
     Dosage: 40MG
     Route: 048
     Dates: start: 20210225, end: 20210323
  3. DAFLON (DIOSMIN) [Suspect]
     Active Substance: DIOSMIN
     Indication: HAEMORRHOIDS
     Dosage: 1DF
     Route: 048
     Dates: start: 20201120, end: 20210318
  4. BROMAZEPAM [Concomitant]
     Active Substance: BROMAZEPAM
     Dosage: 6MG
     Route: 048
     Dates: start: 20201120
  5. LIPTRUZET [Concomitant]
     Active Substance: ATORVASTATIN CALCIUM\EZETIMIBE
     Indication: DYSLIPIDAEMIA
     Dosage: UNKNOWN
     Route: 048
     Dates: start: 2016, end: 20210211
  6. LANSOPRAZOLE. [Concomitant]
     Active Substance: LANSOPRAZOLE
     Dosage: 30MG
     Route: 048
     Dates: start: 20201120, end: 20210315
  7. FESOTERODINE [Concomitant]
     Active Substance: FESOTERODINE
     Dosage: 16MG
     Route: 048
     Dates: start: 20201120

REACTIONS (1)
  - Colitis microscopic [Recovering/Resolving]

NARRATIVE: CASE EVENT DATE: 202103
